FAERS Safety Report 6754964-1 (Version None)
Quarter: 2010Q2

REPORT INFORMATION
  Report Type: 
  Country: None (occurrence: None)
  Receive Date: 20100602
  Receipt Date: 20100517
  Transmission Date: 20101027
  Serious: Yes (Death, Hospitalization)
  Sender: FDA-Public Use
  Company Number: 1-22652108

PATIENT
  Sex: Male
  Weight: 4 kg

DRUGS (5)
  1. AMMONUL [Suspect]
     Indication: HYPERAMMONAEMIA
     Dosage: 5 ML/KG/DAY, INTRAVENOUS
     Route: 042
     Dates: start: 20100101, end: 20100101
  2. ^CEFOTOXIN^ [Concomitant]
  3. ^AMICOCYN^ [Concomitant]
  4. ^NOCYTE SUSPENSION^ [Concomitant]
  5. ^FORMULA (UCD1) MONA^ AND CARBAGLU [Concomitant]

REACTIONS (6)
  - AMMONIA INCREASED [None]
  - APNOEA [None]
  - CARDIAC ARREST [None]
  - CIRCULATORY COLLAPSE [None]
  - HYPOTENSION [None]
  - NO THERAPEUTIC RESPONSE [None]
